FAERS Safety Report 8439008-8 (Version None)
Quarter: 2012Q2

REPORT INFORMATION
  Report Type: 
  Country: None (occurrence: None)
  Receive Date: 20120615
  Receipt Date: 20120607
  Transmission Date: 20120825
  Serious: Yes (Other)
  Sender: FDA-Public Use
  Company Number: US-BAYER-2012-058477

PATIENT
  Age: 61 Year
  Sex: Female
  Weight: 124.72 kg

DRUGS (20)
  1. TRASYLOL [Suspect]
     Dosage: 200 ML PUMP PRIME
     Dates: start: 20040803, end: 20040803
  2. FENTANYL [Concomitant]
     Dosage: UNK
     Dates: start: 20040803, end: 20040803
  3. PROPOFOL [Concomitant]
     Dosage: UNK
     Dates: start: 20040803, end: 20040803
  4. LIDOCAINE [Concomitant]
     Dosage: UNK
     Dates: start: 20040803, end: 20040803
  5. RED BLOOD CELLS [Concomitant]
     Dosage: 2 U, UNK
  6. VECURONIUM BROMIDE [Concomitant]
     Dosage: UNK
     Dates: start: 20040803, end: 20040803
  7. PROTAMINE SULFATE [Concomitant]
     Dosage: UNK
     Dates: start: 20040803, end: 20040803
  8. AMIODARONE HCL [Concomitant]
  9. HEPARIN [Concomitant]
     Dosage: UNK
     Dates: start: 20040803, end: 20040803
  10. VERSED [Concomitant]
     Dosage: UNK
     Dates: start: 20040803, end: 20040803
  11. MANNITOL [Concomitant]
     Dosage: UNK
     Dates: start: 20040803, end: 20040803
  12. FORANE [Concomitant]
     Dosage: UNK
     Dates: start: 20040803, end: 20040803
  13. LASIX [Concomitant]
     Dosage: 40 MG, UNK
     Dates: start: 20040803, end: 20040803
  14. TRASYLOL [Suspect]
     Indication: CORONARY ARTERY BYPASS
     Dosage: 1 ML, TEST DOSE
     Dates: start: 20040803, end: 20040803
  15. TRASYLOL [Suspect]
     Dosage: 200 ML LOADING DOE
     Dates: start: 20040803, end: 20040803
  16. TRASYLOL [Suspect]
     Dosage: 50 CC/HR INFUSION
     Dates: start: 20040803, end: 20040803
  17. MILRINONE LACTATE [Concomitant]
     Dosage: UNK
     Dates: start: 20040803, end: 20040803
  18. ANCEF [Concomitant]
     Dosage: 1 G, UNK
     Dates: start: 20040803, end: 20040803
  19. CARDIOPLEGIA [Concomitant]
     Dosage: UNK
     Dates: start: 20040803, end: 20040803
  20. EPINEPHRINE [Concomitant]
     Dosage: UNK
     Dates: start: 20040803, end: 20040803

REACTIONS (3)
  - RENAL FAILURE CHRONIC [None]
  - OLIGURIA [None]
  - SICK SINUS SYNDROME [None]
